FAERS Safety Report 21096217 (Version 2)
Quarter: 2022Q3

REPORT INFORMATION
  Report Type: Spontaneous
  Country: JP (occurrence: JP)
  Receive Date: 20220718
  Receipt Date: 20220812
  Transmission Date: 20221027
  Serious: Yes (Other)
  Sender: FDA-Public Use
  Company Number: JP-IRONWOOD PHARMACEUTICALS, INC.-IRWD2022001189

PATIENT
  Sex: Male

DRUGS (2)
  1. LINACLOTIDE [Suspect]
     Active Substance: LINACLOTIDE
     Indication: Constipation
     Dosage: 0.125 MG, QD
     Route: 048
  2. LINACLOTIDE [Suspect]
     Active Substance: LINACLOTIDE
     Dosage: 0.5 MG, ONCE DAILY
     Route: 048

REACTIONS (3)
  - Hallucination [Recovered/Resolved]
  - Dysuria [Recovered/Resolved]
  - Wrong technique in product usage process [Unknown]
